FAERS Safety Report 24323921 (Version 1)
Quarter: 2024Q3

REPORT INFORMATION
  Report Type: Spontaneous
  Country: NL (occurrence: NL)
  Receive Date: 20240916
  Receipt Date: 20240916
  Transmission Date: 20241017
  Serious: Yes (Other)
  Sender: VIIV
  Company Number: NL-VIIV HEALTHCARE LIMITED-NL2024EME111787

PATIENT

DRUGS (1)
  1. DOVATO [Suspect]
     Active Substance: DOLUTEGRAVIR SODIUM\LAMIVUDINE
     Indication: HIV infection
     Dosage: UNK
     Dates: start: 202310

REACTIONS (3)
  - Plasma cell myeloma [Unknown]
  - Photosensitivity reaction [Unknown]
  - Rash [Unknown]
